FAERS Safety Report 7814788-0 (Version None)
Quarter: 2011Q4

REPORT INFORMATION
  Report Type: 
  Country: None (occurrence: None)
  Receive Date: 20111014
  Receipt Date: 20110929
  Transmission Date: 20120403
  Serious: Yes (Life-Threatening, Hospitalization, Other)
  Sender: FDA-Public Use
  Company Number: JP-ROCHE-782021

PATIENT
  Sex: Female
  Weight: 52.2 kg

DRUGS (6)
  1. PEG-INTERFERON ALFA 2A [Suspect]
     Route: 058
     Dates: start: 20110527, end: 20110602
  2. TMC435 (NS3/4A PROTEASE INHIBITOR) [Suspect]
     Indication: HEPATITIS C
     Route: 065
     Dates: start: 20110323, end: 20110524
  3. PEG-INTERFERON ALFA 2A [Suspect]
     Indication: HEPATITIS C
     Route: 058
     Dates: start: 20110323, end: 20110523
  4. TMC435 (NS3/4A PROTEASE INHIBITOR) [Suspect]
     Route: 065
  5. COPEGUS [Suspect]
     Indication: HEPATITIS C
     Route: 048
  6. COPEGUS [Suspect]
     Route: 048
     Dates: start: 20110527, end: 20110603

REACTIONS (6)
  - SHOCK [None]
  - INFECTIOUS PERITONITIS [None]
  - CARDIAC FAILURE [None]
  - PYELONEPHRITIS [None]
  - BETA HAEMOLYTIC STREPTOCOCCAL INFECTION [None]
  - COLITIS [None]
